FAERS Safety Report 4692949-X (Version None)
Quarter: 2005Q2

REPORT INFORMATION
  Report Type: 
  Country: None (occurrence: None)
  Receive Date: 20050617
  Receipt Date: 20050609
  Transmission Date: 20051028
  Serious: Yes (Hospitalization)
  Sender: FDA-Public Use
  Company Number: MY-ABBOTT-05P-101-0302970-00

PATIENT
  Age: 65 Year

DRUGS (13)
  1. WARFARIN SODIUM [Suspect]
     Indication: ANTICOAGULANT THERAPY
     Dates: start: 20010101, end: 20031219
  2. WARFARIN SODIUM [Suspect]
     Route: 048
     Dates: start: 20031222
  3. WARFARIN SODIUM [Suspect]
     Route: 048
  4. WARFARIN SODIUM [Suspect]
     Route: 048
  5. WARFARIN SODIUM [Suspect]
     Route: 048
  6. WARFARIN SODIUM [Suspect]
     Route: 048
  7. WARFARIN SODIUM [Suspect]
     Route: 048
  8. WARFARIN SODIUM [Suspect]
     Route: 048
  9. PHENYTOIN [Interacting]
     Indication: CONVULSION
     Route: 048
  10. PHENYTOIN [Interacting]
     Route: 048
  11. METOPROLOL [Concomitant]
     Indication: DRUG USE FOR UNKNOWN INDICATION
     Route: 048
  12. NIFEDIPINE [Concomitant]
     Indication: DRUG USE FOR UNKNOWN INDICATION
     Route: 048
  13. GEMFIBROZIL [Concomitant]
     Indication: DRUG USE FOR UNKNOWN INDICATION
     Route: 048

REACTIONS (5)
  - DRUG INTERACTION [None]
  - GINGIVAL BLEEDING [None]
  - HYPOKALAEMIA [None]
  - INTERNATIONAL NORMALISED RATIO INCREASED [None]
  - OEDEMA PERIPHERAL [None]
